FAERS Safety Report 7726611-3 (Version None)
Quarter: 2011Q3

REPORT INFORMATION
  Report Type: 
  Country: None (occurrence: None)
  Receive Date: 20110902
  Receipt Date: 20110822
  Transmission Date: 20111222
  Serious: Yes (Hospitalization)
  Sender: FDA-Public Use
  Company Number: US-ELI_LILLY_AND_COMPANY-US200603004293

PATIENT
  Sex: Male
  Weight: 107.9 kg

DRUGS (6)
  1. TRAZODONE HCL [Concomitant]
     Dosage: 100 MG, EACH EVENING
     Route: 048
  2. PROZAC [Concomitant]
     Dosage: 80 MG, DAILY (1/D)
     Route: 048
  3. DOXEPIN [Concomitant]
  4. ZYPREXA [Suspect]
     Indication: POST-TRAUMATIC STRESS DISORDER
     Dosage: 5 MG, DAILY (1/D)
     Route: 048
     Dates: end: 19970917
  5. DEPAKOTE [Concomitant]
     Dosage: 1250 MG, 2/D
     Route: 048
  6. ZYPREXA [Suspect]
     Dosage: 10 MG, DAILY (1/D)
     Route: 048

REACTIONS (8)
  - HOSPITALISATION [None]
  - PANCREATIC DISORDER [None]
  - TYPE 2 DIABETES MELLITUS [None]
  - INSOMNIA [None]
  - BLOOD GLUCOSE INCREASED [None]
  - OFF LABEL USE [None]
  - DEPENDENCE [None]
  - DRUG WITHDRAWAL SYNDROME [None]
